FAERS Safety Report 21253068 (Version 1)
Quarter: 2022Q3

REPORT INFORMATION
  Report Type: Report from Study
  Country: FR (occurrence: None)
  Receive Date: 20220825
  Receipt Date: 20220825
  Transmission Date: 20221027
  Serious: Yes (Hospitalization)
  Sender: FDA-Public Use
  Company Number: FR-ROCHE-3164677

PATIENT
  Age: 66 Year
  Sex: Male

DRUGS (6)
  1. ATEZOLIZUMAB [Suspect]
     Active Substance: ATEZOLIZUMAB
     Indication: Bladder transitional cell carcinoma
     Dosage: AS PER PROTOCOL, EVERY 3 WEEKS  (21 + OR - 2 DAYS) FOR 1 YEAR (18 CYCLES AS A MAXIMUM).
     Route: 041
  2. BCG-MEDAC [Suspect]
     Active Substance: BACILLUS CALMETTE-GUERIN ANTIGEN, UNSPECIFIED SUBSTRAIN
     Indication: Bladder transitional cell carcinoma
     Dosage: AS PER PROTOCOL, ONCE PER WEEK FOR 3 WEEKS
     Route: 043
     Dates: end: 20220629
  3. KARDEGIC [Concomitant]
     Active Substance: ASPIRIN DL-LYSINE
     Route: 048
  4. EZETIMIBE\ROSUVASTATIN [Concomitant]
     Active Substance: EZETIMIBE\ROSUVASTATIN
     Indication: Hypercholesterolaemia
     Dosage: 20/10 MG
  5. ESOMEPRAZOLE [Concomitant]
     Active Substance: ESOMEPRAZOLE
     Route: 048
  6. OFLOXACIN [Concomitant]
     Active Substance: OFLOXACIN
     Dosage: FREQUENCY: 1 TABLET IN THE MORNING AND IN THE EVENING DURING 15 DAYS

REACTIONS (1)
  - Pancreatitis acute [Recovered/Resolved]

NARRATIVE: CASE EVENT DATE: 20220713
